FAERS Safety Report 13357893 (Version 1)
Quarter: 2017Q1

REPORT INFORMATION
  Report Type: Spontaneous
  Country: US (occurrence: US)
  Receive Date: 20170322
  Receipt Date: 20170322
  Transmission Date: 20170429
  Serious: Yes (Hospitalization, Other)
  Sender: FDA-Public Use
  Company Number: US-ZYDUS-014368

PATIENT
  Age: 54 Year
  Sex: Male

DRUGS (2)
  1. RISPERIDONE. [Suspect]
     Active Substance: RISPERIDONE
     Indication: SCHIZOAFFECTIVE DISORDER DEPRESSIVE TYPE
     Route: 048
  2. LORAZEPAM. [Suspect]
     Active Substance: LORAZEPAM
     Indication: SCHIZOAFFECTIVE DISORDER DEPRESSIVE TYPE
     Route: 048

REACTIONS (8)
  - Corneal reflex decreased [Recovering/Resolving]
  - Hypophagia [Recovering/Resolving]
  - Waxy flexibility [Recovering/Resolving]
  - Mental impairment [Recovering/Resolving]
  - Catatonia [Recovering/Resolving]
  - Hyporesponsive to stimuli [Recovering/Resolving]
  - Hypokinesia [Recovering/Resolving]
  - Blunted affect [Recovering/Resolving]
